FAERS Safety Report 7175874-4 (Version None)
Quarter: 2010Q4

REPORT INFORMATION
  Report Type: 
  Country: None (occurrence: None)
  Receive Date: 20101220
  Receipt Date: 20100422
  Transmission Date: 20110411
  Serious: No
  Sender: FDA-Public Use
  Company Number: US-AMGEN-TCS403862

PATIENT

DRUGS (14)
  1. ENBREL [Suspect]
     Indication: PSORIATIC ARTHROPATHY
     Dosage: 50 MG, 2 TIMES/WK
     Route: 058
     Dates: start: 20100225, end: 20100407
  2. DICLOFENAC SODIUM [Concomitant]
     Dosage: 75 MG, BID
     Route: 048
     Dates: start: 20091217
  3. TIZANIDINE HYDROCHLORIDE [Concomitant]
     Dosage: 4 MG, BID
     Route: 048
     Dates: start: 20091217
  4. HYDROCODONE BITARTRATE AND ACETAMINOPHEN [Concomitant]
     Dosage: UNK UNK, UNK
     Route: 048
     Dates: start: 20091217
  5. ZOLPIDEM TARTRATE [Concomitant]
     Dosage: 10 MG, QD
     Route: 048
     Dates: start: 20080801
  6. CALCIUM CARBONATE/VITAMIN D [Concomitant]
     Dosage: UNK UNK, BID
     Route: 048
     Dates: start: 20100114
  7. COLECALCIFEROL [Concomitant]
     Dosage: 1000 IU/KG, BID
     Route: 048
     Dates: start: 20100114
  8. MULTI-VITAMINS [Concomitant]
     Dosage: UNK UNK, QD
     Dates: start: 20040701
  9. TOCOPHEROL CONCENTRATE CAP [Concomitant]
     Dosage: 1000 IU, QD
     Route: 048
     Dates: start: 20040701
  10. ESTRADIOL [Concomitant]
     Dosage: 1 MG, QD
     Route: 048
     Dates: start: 20090924
  11. ESTROGENS CONJUGATED [Concomitant]
     Dosage: UNK UNK, UNK
     Dates: start: 20100114
  12. CYANOCOBALAMIN [Concomitant]
     Dosage: 500 A?G, QD
     Route: 048
     Dates: start: 20090924
  13. OMEPRAZOLE [Concomitant]
     Dosage: 20 MG, QD
     Route: 048
     Dates: start: 20080801
  14. FISH OIL [Concomitant]
     Dosage: 1000 MG, QD
     Route: 048
     Dates: start: 20100114

REACTIONS (18)
  - ARTHRALGIA [None]
  - BACK PAIN [None]
  - EAR PRURITUS [None]
  - ERYTHEMA [None]
  - FLUSHING [None]
  - HYPERSENSITIVITY [None]
  - INJECTION SITE HAEMORRHAGE [None]
  - INJECTION SITE PAIN [None]
  - INJECTION SITE PRURITUS [None]
  - INJECTION SITE RASH [None]
  - INJECTION SITE REACTION [None]
  - INJECTION SITE SWELLING [None]
  - INJECTION SITE URTICARIA [None]
  - INJECTION SITE WARMTH [None]
  - INSOMNIA [None]
  - OROPHARYNGEAL PAIN [None]
  - PSORIATIC ARTHROPATHY [None]
  - RASH [None]
